FAERS Safety Report 12560915 (Version 1)
Quarter: 2016Q3

REPORT INFORMATION
  Report Type: Report from Study
  Country: IT (occurrence: IT)
  Receive Date: 20160715
  Receipt Date: 20160715
  Transmission Date: 20161109
  Serious: Yes (Other)
  Sender: FDA-Public Use
  Company Number: IT-TEVA-675348ACC

PATIENT

DRUGS (2)
  1. ASPIRINA [Interacting]
     Active Substance: ASPIRIN
     Dosage: UNKNOWN
  2. NAPROXEN. [Suspect]
     Active Substance: NAPROXEN
     Dosage: UNKNOWN

REACTIONS (3)
  - Drug interaction [Unknown]
  - Ulcer [Unknown]
  - Haemorrhage [Unknown]
